FAERS Safety Report 14732499 (Version 2)
Quarter: 2018Q2

REPORT INFORMATION
  Report Type: Spontaneous
  Country: AU (occurrence: AU)
  Receive Date: 20180409
  Receipt Date: 20180420
  Transmission Date: 20180711
  Serious: Yes (Other)
  Sender: FDA-Public Use
  Company Number: AU-SUN PHARMACEUTICAL INDUSTRIES LTD-2018RR-169383

PATIENT
  Age: 47 Year
  Sex: Male

DRUGS (1)
  1. MIRTAZAPINE. [Suspect]
     Active Substance: MIRTAZAPINE
     Indication: DEPRESSION
     Dosage: UNK
     Route: 065

REACTIONS (5)
  - Non-alcoholic steatohepatitis [Recovering/Resolving]
  - Weight increased [Recovered/Resolved]
  - Hypertriglyceridaemia [Recovering/Resolving]
  - Increased appetite [Recovering/Resolving]
  - Diabetes mellitus [Recovering/Resolving]
